FAERS Safety Report 21463216 (Version 1)
Quarter: 2022Q4

REPORT INFORMATION
  Report Type: Spontaneous
  Country: GR (occurrence: GR)
  Receive Date: 20221017
  Receipt Date: 20221017
  Transmission Date: 20230113
  Serious: Yes (Other)
  Sender: FDA-Public Use
  Company Number: GR-002147023-NVSC2022GR178615

PATIENT
  Age: 83 Year
  Sex: Female

DRUGS (6)
  1. XOLAIR [Suspect]
     Active Substance: OMALIZUMAB
     Indication: Asthma
     Dosage: 150 MG, QMO (FOR 7 YEARS)
     Route: 058
     Dates: start: 2015, end: 20220622
  2. DULOXETINE HYDROCHLORIDE [Concomitant]
     Active Substance: DULOXETINE HYDROCHLORIDE
     Indication: Product used for unknown indication
     Dosage: UNK
  3. AZAPIN (GREECE) [Concomitant]
     Indication: Product used for unknown indication
     Dosage: UNK
  4. LEVOTHYROXINE [Concomitant]
     Active Substance: LEVOTHYROXINE
     Indication: Product used for unknown indication
     Dosage: 1 DOSAGE FORM, QD (75 UNTIL FRIDAY)
  5. FLUTICASONE FUROATE\VILANTEROL TRIFENATATE [Concomitant]
     Active Substance: FLUTICASONE FUROATE\VILANTEROL TRIFENATATE
     Indication: Product used for unknown indication
     Dosage: UNK
  6. TWYNSTA [Concomitant]
     Active Substance: AMLODIPINE BESYLATE\TELMISARTAN
     Indication: Product used for unknown indication
     Dosage: UNK

REACTIONS (16)
  - Pericardial effusion [Unknown]
  - Muscular weakness [Unknown]
  - Eyelid ptosis [Recovering/Resolving]
  - Aortic rupture [Unknown]
  - Microvascular coronary artery disease [Unknown]
  - Biopsy lymph gland [Unknown]
  - Aortic valve calcification [Unknown]
  - Coronary artery disease [Unknown]
  - Eye disorder [Recovering/Resolving]
  - Diaphragmatic hernia [Unknown]
  - Pulmonary mass [Unknown]
  - White matter lesion [Unknown]
  - Ischaemia [Unknown]
  - Mucosal disorder [Unknown]
  - Cyst [Unknown]
  - Benign enlargement of the subarachnoid spaces [Unknown]

NARRATIVE: CASE EVENT DATE: 20220509
